FAERS Safety Report 15869628 (Version 1)
Quarter: 2019Q1

REPORT INFORMATION
  Report Type: Spontaneous
  Country: FR (occurrence: FR)
  Receive Date: 20190125
  Receipt Date: 20190125
  Transmission Date: 20190417
  Serious: Yes (Hospitalization)
  Sender: FDA-Public Use
  Company Number: FR-009507513-1901FRA006543

PATIENT
  Age: 19 Year
  Sex: Female
  Weight: 61 kg

DRUGS (12)
  1. BETAMETHASONE SODIUM PHOSPHATE [Suspect]
     Active Substance: BETAMETHASONE SODIUM PHOSPHATE
     Dosage: 4 MG, TOTAL
     Route: 042
     Dates: start: 20170310, end: 20170310
  2. LIDOCAINE. [Suspect]
     Active Substance: LIDOCAINE
     Indication: INDUCTION OF ANAESTHESIA
     Dosage: 60 MG, TOTAL
     Route: 042
     Dates: start: 20170310, end: 20170310
  3. SUCCINYLCHOLINE CHLORIDE. [Suspect]
     Active Substance: SUCCINYLCHOLINE CHLORIDE
     Indication: INDUCTION OF ANAESTHESIA
     Dosage: 60 MG, TOTAL
     Route: 042
     Dates: start: 20170310, end: 20170310
  4. SUCCINYLCHOLINE CHLORIDE. [Suspect]
     Active Substance: SUCCINYLCHOLINE CHLORIDE
     Dosage: 60 MG, TOTAL
     Route: 042
     Dates: start: 20170310, end: 20170310
  5. BETAMETHASONE SODIUM PHOSPHATE [Suspect]
     Active Substance: BETAMETHASONE SODIUM PHOSPHATE
     Indication: INDUCTION OF ANAESTHESIA
     Dosage: 60 MG, TOTAL
     Route: 042
     Dates: start: 20170310, end: 20170310
  6. PROPOFOL. [Suspect]
     Active Substance: PROPOFOL
     Indication: INDUCTION OF ANAESTHESIA
     Dosage: 60 MG, TOTAL
     Route: 042
     Dates: start: 20170310, end: 20170310
  7. PROPOFOL. [Suspect]
     Active Substance: PROPOFOL
     Dosage: 60 MG, TOTAL
     Route: 042
     Dates: start: 20170310, end: 20170310
  8. LIDOCAINE. [Suspect]
     Active Substance: LIDOCAINE
     Dosage: 60 MG, TOTAL
     Route: 042
     Dates: start: 20170310, end: 20170310
  9. LIDOCAINE. [Suspect]
     Active Substance: LIDOCAINE
     Dosage: 50 MG, TOTAL
     Route: 042
     Dates: start: 20170310, end: 20170310
  10. SUCCINYLCHOLINE CHLORIDE. [Suspect]
     Active Substance: SUCCINYLCHOLINE CHLORIDE
     Dosage: 60 MG, TOTAL
     Route: 042
     Dates: start: 20180310, end: 20180310
  11. BETAMETHASONE SODIUM PHOSPHATE [Suspect]
     Active Substance: BETAMETHASONE SODIUM PHOSPHATE
     Dosage: 60 MG, TOTAL
     Route: 042
     Dates: start: 20170310, end: 20170310
  12. PROPOFOL. [Suspect]
     Active Substance: PROPOFOL
     Dosage: 300 MG, TOTAL
     Route: 042
     Dates: start: 20180310, end: 20180310

REACTIONS (1)
  - Anaphylactic shock [Recovered/Resolved]

NARRATIVE: CASE EVENT DATE: 20170310
